FAERS Safety Report 24020393 (Version 5)
Quarter: 2025Q1

REPORT INFORMATION
  Report Type: Spontaneous
  Country: US (occurrence: US)
  Receive Date: 20240627
  Receipt Date: 20250219
  Transmission Date: 20250408
  Serious: Yes (Hospitalization)
  Sender: SANOFI AVENTIS
  Company Number: US-SA-SAC20240625000062

PATIENT
  Age: 63 Year
  Sex: Male
  Weight: 71.791 kg

DRUGS (12)
  1. DUPIXENT [Suspect]
     Active Substance: DUPILUMAB
     Indication: Asthma
     Dosage: 300 MG, QOW
     Route: 058
  2. DUPIXENT [Suspect]
     Active Substance: DUPILUMAB
     Indication: Cystic fibrosis
  3. CAYSTON [Concomitant]
     Active Substance: AZTREONAM
  4. PULMOZYME [Concomitant]
     Active Substance: DORNASE ALFA
  5. NOVOLOG [Concomitant]
     Active Substance: INSULIN ASPART
  6. LANTUS [Concomitant]
     Active Substance: INSULIN GLARGINE
  7. TOBI PODHALER [Concomitant]
     Active Substance: TOBRAMYCIN
  8. VITAMIN D2 [Concomitant]
     Active Substance: ERGOCALCIFEROL
  9. AZITHROMYCIN [Concomitant]
     Active Substance: AZITHROMYCIN
  10. CREON [Concomitant]
     Active Substance: PANCRELIPASE AMYLASE\PANCRELIPASE LIPASE\PANCRELIPASE PROTEASE
  11. VITAMINS NOS [Concomitant]
     Active Substance: VITAMINS
  12. ADVAIR HFA [Concomitant]
     Active Substance: FLUTICASONE PROPIONATE\SALMETEROL XINAFOATE

REACTIONS (4)
  - Cystic fibrosis [Unknown]
  - Condition aggravated [Unknown]
  - Asthma [Unknown]
  - Product use in unapproved indication [Unknown]
